FAERS Safety Report 15159160 (Version 2)
Quarter: 2018Q3

REPORT INFORMATION
  Report Type: Spontaneous
  Country: US (occurrence: US)
  Receive Date: 20180718
  Receipt Date: 20180925
  Transmission Date: 20181010
  Serious: No
  Sender: FDA-Public Use
  Company Number: US-ASTRAZENECA-2012SE22949

PATIENT
  Age: 74 Year
  Sex: Male
  Weight: 76.7 kg

DRUGS (5)
  1. CRESTOR [Suspect]
     Active Substance: ROSUVASTATIN CALCIUM
     Route: 048
  2. AMLODIPINE [Concomitant]
     Active Substance: AMLODIPINE BESYLATE
  3. BABY ASPIRIN [Concomitant]
     Active Substance: ASPIRIN
  4. SYMBICORT [Suspect]
     Active Substance: BUDESONIDE\FORMOTEROL FUMARATE DIHYDRATE
     Indication: ASTHMA
     Dosage: 160/4.5 MCG TWO PUFFS TWICE A DAY
     Route: 055
     Dates: start: 20180606
  5. BENICAR [Concomitant]
     Active Substance: OLMESARTAN MEDOXOMIL

REACTIONS (7)
  - Cough [Unknown]
  - Therapeutic response unexpected [Unknown]
  - Dyspnoea [Not Recovered/Not Resolved]
  - Nasal congestion [Unknown]
  - Throat irritation [Unknown]
  - Wheezing [Not Recovered/Not Resolved]
  - Device malfunction [Unknown]
